FAERS Safety Report 4965246-2 (Version None)
Quarter: 2006Q1

REPORT INFORMATION
  Report Type: 
  Country: None (occurrence: None)
  Receive Date: 20060130
  Receipt Date: 20050913
  Transmission Date: 20060701
  Serious: No
  Sender: FDA-Public Use
  Company Number: COT_0268_2005

PATIENT
  Age: 71 Year
  Sex: Female
  Weight: 90.2658 kg

DRUGS (11)
  1. VENTAVIS [Suspect]
     Indication: PULMONARY HYPERTENSION
     Dosage: 2.5 MG ONCE IH
     Route: 055
     Dates: start: 20050705, end: 20050705
  2. VENTAVIS [Suspect]
     Indication: PULMONARY HYPERTENSION
     Dosage: 5 MCG 6TO9X/DAY IH
     Route: 055
     Dates: start: 20050705
  3. VENTAVIS [Suspect]
     Indication: PULMONARY HYPERTENSION
     Dosage: 2.5 MCG 6TO9X/DAY IH
     Route: 055
  4. ZAROXOLYN [Concomitant]
  5. SYNTHROID [Concomitant]
  6. ATENOLOL [Concomitant]
  7. ENALAPRIL MALEATE [Concomitant]
  8. SENOKOT [Concomitant]
  9. PREDNISONE 50MG TAB [Concomitant]
  10. PREVACID [Concomitant]
  11. LIDEX [Concomitant]

REACTIONS (1)
  - PAIN IN EXTREMITY [None]
